FAERS Safety Report 8589906-X (Version None)
Quarter: 2012Q3

REPORT INFORMATION
  Report Type: 
  Country: None (occurrence: None)
  Receive Date: 20120813
  Receipt Date: 20120809
  Transmission Date: 20120928
  Serious: Yes (Hospitalization)
  Sender: FDA-Public Use
  Company Number: PHHY2012JP042032

PATIENT
  Age: 77 Year
  Sex: Male

DRUGS (11)
  1. TEGRETOL [Suspect]
     Indication: EPILEPSY
     Dosage: UNK UKN, UNK
     Route: 048
     Dates: start: 20120316, end: 20120417
  2. CEFACLOR [Suspect]
     Indication: RESPIRATORY TRACT INFECTION
     Dosage: UNK UKN, UNK
     Route: 048
     Dates: start: 20120412
  3. TEOFURMATE [Concomitant]
     Route: 048
  4. HOKUNALIN [Concomitant]
     Route: 062
  5. DEPAKENE [Suspect]
     Indication: EPILEPSY
     Dosage: UNK UKN, UNK
     Route: 048
     Dates: start: 20120418
  6. CYSCARBON [Concomitant]
     Dosage: UNK UKN, UNK
     Route: 048
     Dates: start: 20111029
  7. ASPIRIN [Concomitant]
     Indication: CEREBRAL INFARCTION
     Dosage: UNK UKN, UNK
     Route: 048
     Dates: start: 20100101
  8. CLARITHROMYCIN [Suspect]
     Indication: URINARY TRACT INFECTION
     Dosage: UNK UKN, UNK
     Route: 048
     Dates: start: 20111129, end: 20111206
  9. PROTECADIN [Concomitant]
     Indication: CEREBRAL INFARCTION
     Dosage: UNK UKN, UNK
     Route: 048
  10. KEPPRA [Suspect]
     Indication: EPILEPSY
     Dosage: UNK UKN, UNK
     Route: 048
     Dates: start: 20120418
  11. FEBURIC [Concomitant]
     Dosage: UNK UKN, UNK
     Route: 048
     Dates: start: 20111114

REACTIONS (24)
  - DELIRIUM [None]
  - ERYTHEMA [None]
  - RASH [None]
  - ABDOMINAL PAIN [None]
  - MASS [None]
  - BLOOD POTASSIUM INCREASED [None]
  - INSOMNIA [None]
  - ERYTHEMA MULTIFORME [None]
  - MALAISE [None]
  - ADRENAL INSUFFICIENCY [None]
  - PROCALCITONIN INCREASED [None]
  - DRUG ERUPTION [None]
  - DERMATITIS [None]
  - EXTRAVASATION BLOOD [None]
  - HUMAN HERPESVIRUS 6 INFECTION [None]
  - EPIDERMAL NECROSIS [None]
  - PIGMENTATION DISORDER [None]
  - LYMPHOCYTIC INFILTRATION [None]
  - INJECTION SITE INDURATION [None]
  - URINARY TRACT INFECTION [None]
  - PRURITUS [None]
  - LIVER DISORDER [None]
  - PYREXIA [None]
  - MYCOPLASMA TEST POSITIVE [None]
